FAERS Safety Report 9027015 (Version 1)
Quarter: 2013Q1

REPORT INFORMATION
  Report Type: Spontaneous
  Country: SE (occurrence: SE)
  Receive Date: 20130123
  Receipt Date: 20130123
  Transmission Date: 20140127
  Serious: Yes (Other)
  Sender: FDA-Public Use
  Company Number: SE-ELI_LILLY_AND_COMPANY-SE201301005333

PATIENT
  Sex: Male

DRUGS (8)
  1. ZYPREXA [Suspect]
     Dosage: 5 MG, QD
     Dates: start: 2003
  2. ZYPREXA [Suspect]
     Dosage: 10 MG, QD
  3. LITHIUM [Concomitant]
     Dosage: UNK
     Dates: start: 2007
  4. SYMBICORT [Concomitant]
     Indication: ASTHMA
  5. SPIRIVA [Concomitant]
     Indication: ASTHMA
  6. IMOVANE [Concomitant]
  7. PROPAVAN [Concomitant]
  8. SOBRIL [Concomitant]

REACTIONS (1)
  - Platelet count decreased [Unknown]
